FAERS Safety Report 14748097 (Version 1)
Quarter: 2018Q2

REPORT INFORMATION
  Report Type: Spontaneous
  Country: TW (occurrence: TW)
  Receive Date: 20180411
  Receipt Date: 20180411
  Transmission Date: 20180711
  Serious: Yes (Other)
  Sender: FDA-Public Use
  Company Number: TW-GILEAD-2018-0321100

PATIENT
  Age: 84 Year
  Sex: Female

DRUGS (2)
  1. RIBAVIRIN. [Suspect]
     Active Substance: RIBAVIRIN
     Indication: CHRONIC HEPATITIS C
     Dosage: 2 DF, BID
     Route: 065
     Dates: start: 20180105
  2. SOVALDI [Suspect]
     Active Substance: SOFOSBUVIR
     Indication: CHRONIC HEPATITIS C
     Dosage: 1 DF, QD
     Route: 065
     Dates: start: 20180105

REACTIONS (2)
  - Drug ineffective [Unknown]
  - Therapy cessation [Unknown]
